FAERS Safety Report 9472638 (Version 2)
Quarter: 2013Q3

REPORT INFORMATION
  Report Type: Spontaneous
  Country: US (occurrence: US)
  Receive Date: 20130823
  Receipt Date: 20130830
  Transmission Date: 20140515
  Serious: Yes (Hospitalization)
  Sender: FDA-Public Use
  Company Number: US-BAYER-2013-101479

PATIENT
  Age: 61 Year
  Sex: Male
  Weight: 93 kg

DRUGS (10)
  1. ALEVE TABLET [Suspect]
     Indication: BACK PAIN
     Dosage: 2 DF, PRN
     Route: 048
     Dates: start: 2008, end: 20130518
  2. ONE A DAY MEN^S HEALTH FORMULA [Suspect]
     Dosage: 1 DF, QD
     Route: 048
     Dates: start: 2013
  3. HYDROCHLOROTHIAZIDE [Concomitant]
  4. RANITIDINE [Concomitant]
     Dosage: UNK
  5. ATENOLOL [Concomitant]
  6. ALLOPURINOL [Concomitant]
  7. ABILIFY [Concomitant]
  8. BUPROPION SR [Concomitant]
  9. CLONAZEPAM [Concomitant]
  10. CALCIUM [Concomitant]

REACTIONS (4)
  - Convulsion [Recovered/Resolved]
  - Overdose [None]
  - Incorrect drug administration duration [None]
  - Memory impairment [Not Recovered/Not Resolved]
